FAERS Safety Report 18317810 (Version 3)
Quarter: 2022Q2

REPORT INFORMATION
  Report Type: Spontaneous
  Country: US (occurrence: US)
  Receive Date: 20200928
  Receipt Date: 20220427
  Transmission Date: 20220721
  Serious: Yes (Other)
  Sender: FDA-Public Use
  Company Number: US-SA-2020SA262071

PATIENT
  Age: 61 Year
  Sex: Male

DRUGS (1)
  1. ZANTAC [Suspect]
     Active Substance: RANITIDINE HYDROCHLORIDE
     Indication: Dyspepsia
     Dosage: 150 MG, QD
     Dates: start: 198904, end: 200001

REACTIONS (2)
  - Bladder cancer stage I, with cancer in situ [Unknown]
  - Prostate cancer stage I [Unknown]

NARRATIVE: CASE EVENT DATE: 20110101
